FAERS Safety Report 4708770-X (Version None)
Quarter: 2005Q3

REPORT INFORMATION
  Report Type: 
  Country: None (occurrence: None)
  Receive Date: 20050705
  Receipt Date: 20050623
  Transmission Date: 20060218
  Serious: Yes (Hospitalization, Other)
  Sender: FDA-Public Use
  Company Number: 2005089444

PATIENT
  Age: 43 Year
  Sex: Female

DRUGS (3)
  1. ZOLOFT [Suspect]
     Indication: PANIC ATTACK
     Dosage: 50 MG (1 D), ORAL
     Route: 048
     Dates: start: 20050501
  2. ALPRAZOLAM [Concomitant]
  3. FLUOXETINE [Concomitant]

REACTIONS (3)
  - ANXIETY [None]
  - TEMPORAL LOBE EPILEPSY [None]
  - TREMOR [None]
